FAERS Safety Report 8365012-4 (Version None)
Quarter: 2012Q2

REPORT INFORMATION
  Report Type: 
  Country: None (occurrence: None)
  Receive Date: 20120516
  Receipt Date: 20120509
  Transmission Date: 20120825
  Serious: Yes (Death)
  Sender: FDA-Public Use
  Company Number: US-GLAXOSMITHKLINE-A0977742A

PATIENT
  Age: 52 Year
  Sex: Female

DRUGS (3)
  1. AFINITOR [Concomitant]
  2. TYKERB [Suspect]
     Indication: NEOPLASM MALIGNANT
     Dosage: 1250MG PER DAY
     Route: 048
     Dates: start: 20111221
  3. VOTRIENT [Concomitant]

REACTIONS (1)
  - DEATH [None]
